FAERS Safety Report 16384608 (Version 1)
Quarter: 2019Q2

REPORT INFORMATION
  Report Type: Spontaneous
  Country: US (occurrence: US)
  Receive Date: 20190603
  Receipt Date: 20190603
  Transmission Date: 20190711
  Serious: No
  Sender: FDA-Public Use
  Company Number: US-BAYER-2019-105565

PATIENT
  Age: 79 Year
  Sex: Female
  Weight: 90.7 kg

DRUGS (1)
  1. CLARITIN [Suspect]
     Active Substance: LORATADINE
     Dosage: 1 DF, QD
     Route: 048
     Dates: start: 20190401

REACTIONS (8)
  - Cough [None]
  - Asthenia [Unknown]
  - Off label use [None]
  - Nausea [Unknown]
  - Bronchitis [None]
  - Somnolence [Unknown]
  - Product use in unapproved indication [None]
  - Vomiting [Unknown]

NARRATIVE: CASE EVENT DATE: 20190525
